FAERS Safety Report 10642840 (Version 1)
Quarter: 2014Q4

REPORT INFORMATION
  Report Type: Spontaneous
  Country: US (occurrence: US)
  Receive Date: 20141210
  Receipt Date: 20141210
  Transmission Date: 20150529
  Serious: No
  Sender: FDA-Public Use
  Company Number: US-009507513-1411USA012218

PATIENT
  Age: 59 Year
  Sex: Male

DRUGS (2)
  1. FONDAPARINUX SODIUM. [Concomitant]
     Active Substance: FONDAPARINUX SODIUM
     Indication: PRODUCT USED FOR UNKNOWN INDICATION
  2. ZONTIVITY [Suspect]
     Active Substance: VORAPAXAR SULFATE
     Indication: PRODUCT USED FOR UNKNOWN INDICATION
     Dosage: 2.08 MG, QD
     Route: 048
     Dates: start: 201407

REACTIONS (1)
  - Vascular pseudoaneurysm [Not Recovered/Not Resolved]

NARRATIVE: CASE EVENT DATE: 2014
